FAERS Safety Report 10062390 (Version 1)
Quarter: 2014Q2

REPORT INFORMATION
  Report Type: Spontaneous
  Country: US (occurrence: US)
  Receive Date: 20140407
  Receipt Date: 20140407
  Transmission Date: 20141212
  Serious: No
  Sender: FDA-Public Use
  Company Number: US-PFIZER INC-2014095785

PATIENT
  Age: 7 Decade
  Sex: Male

DRUGS (3)
  1. CELEBREX [Suspect]
     Indication: ARTHRALGIA
     Dosage: 100 MG, 2X/DAY
     Route: 048
     Dates: start: 201310, end: 201403
  2. DIOVAN (VALSARTAN) [Concomitant]
  3. OXYCODONE [Concomitant]
     Indication: PAIN

REACTIONS (3)
  - Amylase increased [Recovered/Resolved]
  - Lipase increased [Recovered/Resolved]
  - Enzyme level increased [Recovered/Resolved]
